FAERS Safety Report 4607444-3 (Version None)
Quarter: 2005Q1

REPORT INFORMATION
  Report Type: 
  Country: None (occurrence: None)
  Receive Date: 20050309
  Receipt Date: 20050222
  Transmission Date: 20050727
  Serious: Yes (Hospitalization)
  Sender: FDA-Public Use
  Company Number: ST-2004-008168

PATIENT
  Age: 71 Year
  Sex: Female

DRUGS (4)
  1. OLMETEC [Suspect]
     Indication: HYPERTENSION
     Dosage: 20 MG QD PO
     Route: 048
     Dates: start: 20040712, end: 20041130
  2. BLOPRESS [Concomitant]
  3. ALIARON [Concomitant]
  4. TOBRACIN [Concomitant]

REACTIONS (2)
  - GLAUCOMA [None]
  - VISUAL ACUITY REDUCED [None]
